FAERS Safety Report 24544222 (Version 1)
Quarter: 2024Q4

REPORT INFORMATION
  Report Type: Spontaneous
  Country: HR (occurrence: HR)
  Receive Date: 20241024
  Receipt Date: 20241024
  Transmission Date: 20250115
  Serious: Yes (Hospitalization, Other)
  Sender: ASTELLAS
  Company Number: HR-ASTELLAS-2024-AER-012778

PATIENT
  Sex: Male

DRUGS (5)
  1. XOSPATA [Suspect]
     Active Substance: GILTERITINIB
     Indication: Acute monocytic leukaemia
     Dosage: MAINTENANCE THERAPY
     Route: 048
  2. XOSPATA [Suspect]
     Active Substance: GILTERITINIB
     Indication: Leukaemia recurrent
     Route: 048
     Dates: start: 20230414
  3. XOSPATA [Suspect]
     Active Substance: GILTERITINIB
     Dosage: DOSE REDUCTION
     Route: 065
  4. CYCLOPHOSPHAMIDE [Suspect]
     Active Substance: CYCLOPHOSPHAMIDE
     Indication: Product used for unknown indication
     Route: 065
  5. FLUDARABINE [Concomitant]
     Active Substance: FLUDARABINE PHOSPHATE
     Indication: Product used for unknown indication
     Route: 065

REACTIONS (6)
  - Pericarditis [Unknown]
  - Cardiotoxicity [Unknown]
  - Pancytopenia [Unknown]
  - Thrombocytopenia [Unknown]
  - Skin disorder [Recovering/Resolving]
  - Drug ineffective [Unknown]
